FAERS Safety Report 6768467-1 (Version None)
Quarter: 2010Q2

REPORT INFORMATION
  Report Type: 
  Country: None (occurrence: None)
  Receive Date: 20100614
  Receipt Date: 20100608
  Transmission Date: 20101027
  Serious: Yes (Death, Other)
  Sender: FDA-Public Use
  Company Number: PHHY2010FR37593

PATIENT
  Sex: Male
  Weight: 84 kg

DRUGS (1)
  1. CGP 57148B T35717+ [Suspect]
     Indication: CHRONIC MYELOID LEUKAEMIA

REACTIONS (26)
  - ABDOMINAL DISTENSION [None]
  - ACUTE RESPIRATORY DISTRESS SYNDROME [None]
  - BONE MARROW FAILURE [None]
  - COLITIS [None]
  - COLITIS ISCHAEMIC [None]
  - DIARRHOEA [None]
  - ENDOTRACHEAL INTUBATION [None]
  - HAEMODYNAMIC INSTABILITY [None]
  - HAEMOGLOBIN DECREASED [None]
  - HYPOTENSION [None]
  - INFLAMMATION [None]
  - ISCHAEMIC HEPATITIS [None]
  - JAUNDICE [None]
  - LIVER DISORDER [None]
  - MECHANICAL VENTILATION [None]
  - MULTI-ORGAN FAILURE [None]
  - NOREPINEPHRINE INCREASED [None]
  - PROCALCITONIN INCREASED [None]
  - RENAL DISORDER [None]
  - RENAL FAILURE [None]
  - RESPIRATORY DISTRESS [None]
  - SEPTIC SHOCK [None]
  - SOMNOLENCE [None]
  - SYSTEMIC CANDIDA [None]
  - THROMBOCYTOPENIA [None]
  - VASCULAR OPERATION [None]
